FAERS Safety Report 23840955 (Version 12)
Quarter: 2025Q4

REPORT INFORMATION
  Report Type: Report from Study
  Country: CO (occurrence: CO)
  Receive Date: 20240510
  Receipt Date: 20251208
  Transmission Date: 20260118
  Serious: Yes (Disabling, Other)
  Sender: NOVARTIS
  Company Number: CO-002147023-NVSC2024CO098784

PATIENT
  Sex: Male
  Weight: 83 kg

DRUGS (3)
  1. COSENTYX [Suspect]
     Active Substance: SECUKINUMAB
     Indication: Psoriasis
     Dosage: 300 MG, QMO (2 OF 150 ML EACH, EVERY 30 DAYS)
     Route: 058
     Dates: start: 20161124, end: 20240607
  2. COSENTYX [Suspect]
     Active Substance: SECUKINUMAB
     Dosage: 150 MG, QMO
     Route: 065
  3. COSENTYX [Suspect]
     Active Substance: SECUKINUMAB
     Dosage: 300 MG (2 OF 150MG), QMO
     Route: 058
     Dates: end: 202409

REACTIONS (13)
  - Aneurysm [Unknown]
  - Hepatitis B [Recovered/Resolved]
  - Hip fracture [Unknown]
  - Mobility decreased [Unknown]
  - Haemorrhage [Not Recovered/Not Resolved]
  - Wound [Not Recovered/Not Resolved]
  - Weight abnormal [Unknown]
  - Product supply issue [Unknown]
  - Dysstasia [Unknown]
  - Psoriasis [Not Recovered/Not Resolved]
  - Gait disturbance [Not Recovered/Not Resolved]
  - Body height decreased [Unknown]
  - Off label use [Unknown]

NARRATIVE: CASE EVENT DATE: 20210101
